FAERS Safety Report 9710694 (Version 1)
Quarter: 2013Q4

REPORT INFORMATION
  Report Type: Spontaneous
  Country: US (occurrence: US)
  Receive Date: 20131126
  Receipt Date: 20131126
  Transmission Date: 20140711
  Serious: No
  Sender: FDA-Public Use
  Company Number: US-BRISTOL-MYERS SQUIBB COMPANY-19492347

PATIENT
  Sex: Female

DRUGS (1)
  1. BYDUREON [Suspect]

REACTIONS (1)
  - Irritable bowel syndrome [Unknown]
